FAERS Safety Report 8833176 (Version 2)
Quarter: 2012Q4

REPORT INFORMATION
  Report Type: 
  Country: US (occurrence: US)
  Receive Date: 20121010
  Receipt Date: 20121016
  Transmission Date: 20130627
  Serious: Yes (Hospitalization, Disabling, Other)
  Sender: FDA-Public Use
  Company Number: US-009507513-1012USA02293

PATIENT

DRUGS (7)
  1. FOSAMAX [Suspect]
     Indication: OSTEOPOROSIS
     Dosage: 70 mg, QW
     Route: 048
     Dates: start: 20021203, end: 200908
  2. FOSAMAX [Suspect]
     Indication: OSTEOPENIA
  3. PRINIVIL [Concomitant]
     Indication: HYPERTENSION
  4. NORVASC [Concomitant]
     Indication: HYPERTENSION
  5. SIMVASTATIN [Concomitant]
     Indication: BLOOD CHOLESTEROL INCREASED
  6. DIOVAN [Concomitant]
  7. ASPIRIN [Concomitant]

REACTIONS (35)
  - Femur fracture [Recovered/Resolved]
  - Open reduction of fracture [Unknown]
  - Femur fracture [Unknown]
  - Low turnover osteopathy [Unknown]
  - Osteoporosis [Unknown]
  - Stress fracture [Unknown]
  - Fall [Unknown]
  - Bursitis [Unknown]
  - Bone disorder [Unknown]
  - Palpitations [Unknown]
  - Cardiomyopathy [Unknown]
  - Vaginal infection [Unknown]
  - Carpal tunnel syndrome [Unknown]
  - Irritable bowel syndrome [Unknown]
  - Acute sinusitis [Unknown]
  - Cervical dysplasia [Unknown]
  - Enthesopathy [Unknown]
  - Radiculitis lumbosacral [Unknown]
  - Neuritis [Unknown]
  - Anaemia of chronic disease [Unknown]
  - Hypotension [Unknown]
  - Gastrointestinal haemorrhage [Unknown]
  - Osteoarthritis [Unknown]
  - Carotid artery occlusion [Unknown]
  - Carotid artery stenosis [Unknown]
  - Rotator cuff syndrome [Unknown]
  - Eye infection [Unknown]
  - Osteoarthritis [Unknown]
  - Polyneuropathy [Unknown]
  - Rotator cuff syndrome [Unknown]
  - Back pain [Unknown]
  - Pain in extremity [Unknown]
  - Gastrooesophageal reflux disease [Unknown]
  - Vertigo [Unknown]
  - Dizziness [Unknown]
